FAERS Safety Report 6939187-5 (Version None)
Quarter: 2010Q3

REPORT INFORMATION
  Report Type: 
  Country: None (occurrence: None)
  Receive Date: 20100824
  Receipt Date: 20100818
  Transmission Date: 20110219
  Serious: Yes (Other)
  Sender: FDA-Public Use
  Company Number: BR-B.I. PHARMACEUTICALS,INC./RIDGEFIELD-2010-BR-02029BR

PATIENT
  Age: 71 Year
  Sex: Female

DRUGS (3)
  1. ATENSINA [Suspect]
     Indication: HYPERTENSION
     Dosage: 0.2 MG
     Route: 048
     Dates: start: 20080101
  2. ATENOLOL [Concomitant]
  3. LOSARTANA [Concomitant]

REACTIONS (1)
  - BLOOD PRESSURE INCREASED [None]
